FAERS Safety Report 21960584 (Version 5)
Quarter: 2023Q2

REPORT INFORMATION
  Report Type: Spontaneous
  Country: CZ (occurrence: CZ)
  Receive Date: 20230207
  Receipt Date: 20230623
  Transmission Date: 20230721
  Serious: Yes (Other)
  Sender: FDA-Public Use
  Company Number: None

PATIENT
  Age: 57 Year
  Sex: Male

DRUGS (8)
  1. ENOXAPARIN SODIUM [Suspect]
     Active Substance: ENOXAPARIN SODIUM
     Dosage: 0.4 ML, QD
     Dates: start: 20221110, end: 20221201
  2. AZEPO [Concomitant]
     Dosage: UNK
  3. PIRITRAMIDE [Concomitant]
     Active Substance: PIRITRAMIDE
     Dosage: 15 MG
  4. ACETAMINOPHEN [Concomitant]
     Active Substance: ACETAMINOPHEN
     Dosage: UNK
  5. ACETAMINOPHEN [Concomitant]
     Active Substance: ACETAMINOPHEN
  6. TRAMADOL [Concomitant]
     Active Substance: TRAMADOL
     Dosage: UNK
  7. NOVALGIN (METAMIZOLE SODIUM) [Concomitant]
     Active Substance: METAMIZOLE SODIUM
     Dosage: 1 G
  8. CEFUROXIM [CEFUROXIME AXETIL] [Concomitant]
     Dosage: UNK
     Dates: start: 20221125, end: 20221128

REACTIONS (1)
  - Liver disorder [Recovering/Resolving]
